FAERS Safety Report 5004562-5 (Version None)
Quarter: 2006Q2

REPORT INFORMATION
  Report Type: 
  Country: None (occurrence: None)
  Receive Date: 20060512
  Receipt Date: 20060504
  Transmission Date: 20061013
  Serious: Yes (Disabling, Other)
  Sender: FDA-Public Use
  Company Number: 200512189BWH

PATIENT
  Age: 51 Year
  Sex: Male

DRUGS (2)
  1. LEVITRA [Suspect]
     Indication: ERECTILE DYSFUNCTION
     Dosage: 10 MG, QW, ORAL
     Route: 048
  2. NOVOLIN [Concomitant]

REACTIONS (6)
  - CEREBROVASCULAR ACCIDENT [None]
  - DIZZINESS [None]
  - EYE DISORDER [None]
  - NIGHT BLINDNESS [None]
  - VISION BLURRED [None]
  - VISUAL DISTURBANCE [None]
